FAERS Safety Report 12577265 (Version 1)
Quarter: 2016Q3

REPORT INFORMATION
  Report Type: Spontaneous
  Country: US (occurrence: US)
  Receive Date: 20160720
  Receipt Date: 20160720
  Transmission Date: 20161109
  Serious: No
  Sender: FDA-Public Use
  Company Number: US-PERRIGO-15US013004

PATIENT
  Age: 43 Year
  Sex: Female
  Weight: 96.6 kg

DRUGS (3)
  1. MICONAZOLE 1 [Suspect]
     Active Substance: MICONAZOLE NITRATE
     Indication: VULVOVAGINAL DISCOMFORT
  2. MICONAZOLE 1 [Suspect]
     Active Substance: MICONAZOLE NITRATE
     Indication: VULVOVAGINAL MYCOTIC INFECTION
     Dosage: 1200 MG, SINGLE
     Route: 067
  3. MICONAZOLE 1 [Suspect]
     Active Substance: MICONAZOLE NITRATE
     Indication: VAGINAL DISCHARGE
     Dosage: 1200 MG, SINGLE
     Route: 067
     Dates: start: 20151019, end: 20151019

REACTIONS (7)
  - Condition aggravated [Recovered/Resolved]
  - Wrong technique in product usage process [Unknown]
  - Vulvovaginal discomfort [None]
  - Drug ineffective [Unknown]
  - Similar reaction on previous exposure to drug [None]
  - Vulvovaginal burning sensation [Recovered/Resolved]
  - Vaginal haemorrhage [Recovered/Resolved]

NARRATIVE: CASE EVENT DATE: 20151019
